FAERS Safety Report 8184694 (Version 8)
Quarter: 2013Q1

REPORT INFORMATION
  Report Type: Spontaneous
  Country: US (occurrence: None)
  Receive Date: 20111005
  Receipt Date: 20121204
  Transmission Date: 20140127
  Serious: Yes (Hospitalization, Other)
  Sender: FDA-Public Use
  Company Number: CIP11000524

PATIENT
  Age: 73 Year
  Sex: Female

DRUGS (29)
  1. ACTONEL [Suspect]
     Indication: OSTEOPOROSIS
     Route: 048
     Dates: start: 2003
  2. FOSAMAX  (ALENDRONATE SODIUM) [Suspect]
     Route: 048
     Dates: start: 19990310, end: 20001215
  3. FOSAMAX [Suspect]
     Route: 048
     Dates: start: 20010115, end: 20021220
  4. BONIVA [Suspect]
     Route: 048
     Dates: start: 20080110, end: 20080314
  5. RECLAST [Suspect]
     Dosage: 5 MG
  6. BACLOFEN [Concomitant]
  7. CELEBREX [Concomitant]
  8. NEXIUM [Concomitant]
  9. SYNTHROID [Concomitant]
  10. OXYCODONE W/PARACETAMOL (OXYCODONE, PARACETAMOL) [Concomitant]
  11. SIMCOR /03020801/ (NICOTINIC ACID, SIMVASTATIN) [Concomitant]
  12. LOVAZA [Concomitant]
  13. ALLEGRA /01314202/ (FEXOFENADINE HYDROCHLORIDE) [Concomitant]
  14. METHOCARBAMOL [Concomitant]
  15. COLCHICINE [Concomitant]
  16. ACETYLSALICYLIC ACID (ACETYLSALICYLIC ACID) [Concomitant]
  17. CALCIUM CARBONATE [Concomitant]
  18. MAGNESIUM (MAGNESIUM) [Concomitant]
  19. ZINC (ZINC) [Concomitant]
  20. CHROMIUM PICOLINATE (CHROMIUM PICOLINATE) [Concomitant]
  21. FISH OIL (FISH OIL) [Concomitant]
  22. CORTICOSTEROIDS [Concomitant]
  23. AZULFIDINE [Concomitant]
  24. B COMPLEX /00322001/ (CALCIUM PANTOTHENATE, CYANOCOBALAMIN, NICOTINAMIDE, PYRIDOXINE HYDROCHLORIDE, RIBOFLAVIN, THIAMINE HYDROCHLORIDE) [Concomitant]
  25. XALATAN /01297301/ (LATANOPROST) [Concomitant]
  26. FORTEO [Concomitant]
  27. DARVOCET /00758701/ (DEXTROPROPOXYPHENE NAPSILATE, PARACETAMOL) [Concomitant]
  28. MECLIZINE  /00072801/ (MECLOZINE) [Concomitant]
  29. NEURONTIN (GABAPENTIN) [Concomitant]

REACTIONS (27)
  - Femur fracture [None]
  - Fracture displacement [None]
  - Fracture nonunion [None]
  - Fall [None]
  - Traumatic haematoma [None]
  - Groin pain [None]
  - Arthralgia [None]
  - Pain in extremity [None]
  - Osteoarthritis [None]
  - Gait disturbance [None]
  - Joint range of motion decreased [None]
  - Limb asymmetry [None]
  - Activities of daily living impaired [None]
  - Hypoaesthesia [None]
  - Paraesthesia [None]
  - Anaemia postoperative [None]
  - Procedural hypotension [None]
  - Procedural dizziness [None]
  - Osteopenia [None]
  - Impaired healing [None]
  - Bone pain [None]
  - Carpal tunnel syndrome [None]
  - Comminuted fracture [None]
  - Pathological fracture [None]
  - Muscular weakness [None]
  - Radiculitis lumbosacral [None]
  - Fracture delayed union [None]
